FAERS Safety Report 26155949 (Version 1)
Quarter: 2025Q4

REPORT INFORMATION
  Report Type: Spontaneous
  Country: US (occurrence: US)
  Receive Date: 20251215
  Receipt Date: 20251215
  Transmission Date: 20260118
  Serious: No
  Sender: STRIDES
  Company Number: US-STRIDES ARCOLAB LIMITED-2025SP013092

PATIENT
  Age: 49 Year
  Sex: Female

DRUGS (12)
  1. MYCOPHENOLATE MOFETIL [Suspect]
     Active Substance: MYCOPHENOLATE MOFETIL
     Indication: Systemic lupus erythematosus
     Dosage: UNK
     Route: 065
  2. MYCOPHENOLATE MOFETIL [Suspect]
     Active Substance: MYCOPHENOLATE MOFETIL
     Indication: Chronic cutaneous lupus erythematosus
  3. MYCOPHENOLATE MOFETIL [Suspect]
     Active Substance: MYCOPHENOLATE MOFETIL
     Indication: Chronic cutaneous lupus erythematosus
  4. ANIFROLUMAB [Suspect]
     Active Substance: ANIFROLUMAB
     Indication: Systemic lupus erythematosus
     Dosage: UNK
     Route: 065
  5. ANIFROLUMAB [Suspect]
     Active Substance: ANIFROLUMAB
     Indication: Chronic cutaneous lupus erythematosus
  6. ANIFROLUMAB [Suspect]
     Active Substance: ANIFROLUMAB
     Indication: Chronic cutaneous lupus erythematosus
  7. HYDROXYCHLOROQUINE [Suspect]
     Active Substance: HYDROXYCHLOROQUINE
     Indication: Systemic lupus erythematosus
     Dosage: UNK
     Route: 065
  8. HYDROXYCHLOROQUINE [Suspect]
     Active Substance: HYDROXYCHLOROQUINE
     Indication: Chronic cutaneous lupus erythematosus
  9. HYDROXYCHLOROQUINE [Suspect]
     Active Substance: HYDROXYCHLOROQUINE
     Indication: Chronic cutaneous lupus erythematosus
  10. QUINACRINE [Suspect]
     Active Substance: QUINACRINE
     Indication: Systemic lupus erythematosus
     Dosage: UNK
     Route: 065
  11. QUINACRINE [Suspect]
     Active Substance: QUINACRINE
     Indication: Chronic cutaneous lupus erythematosus
  12. QUINACRINE [Suspect]
     Active Substance: QUINACRINE
     Indication: Chronic cutaneous lupus erythematosus

REACTIONS (2)
  - Bronchitis [Unknown]
  - Off label use [Unknown]
